FAERS Safety Report 6193030-3 (Version None)
Quarter: 2009Q2

REPORT INFORMATION
  Report Type: 
  Country: None (occurrence: None)
  Receive Date: 20090514
  Receipt Date: 20090504
  Transmission Date: 20091009
  Serious: Yes (Hospitalization)
  Sender: FDA-Public Use
  Company Number: 230801K08USA

PATIENT
  Age: 48 Year
  Sex: Female

DRUGS (3)
  1. REBIF [Suspect]
     Indication: MULTIPLE SCLEROSIS
     Dosage: 44 MCG, 3 IN 1 WEEKS, SUBCUTANEOUS
     Route: 058
  2. UNSPECIFIED BLOOD THINNERS (ALL OTHER THERAPEUTIC PRODUCTS) [Concomitant]
  3. PROVIGIL [Concomitant]

REACTIONS (8)
  - ABDOMINAL DISTENSION [None]
  - BLINDNESS [None]
  - CONDITION AGGRAVATED [None]
  - DIPLOPIA [None]
  - MULTIPLE SCLEROSIS [None]
  - OEDEMA PERIPHERAL [None]
  - UNEVALUABLE EVENT [None]
  - VISION BLURRED [None]
